FAERS Safety Report 5390365-9 (Version None)
Quarter: 2007Q3

REPORT INFORMATION
  Report Type: 
  Country: None (occurrence: None)
  Receive Date: 20070718
  Receipt Date: 20070713
  Transmission Date: 20080115
  Serious: Yes (Death, Hospitalization)
  Sender: FDA-Public Use
  Company Number: FR-JNJFOC-20070702892

PATIENT
  Age: 75 Year
  Sex: Male

DRUGS (20)
  1. OFLOCET [Suspect]
     Indication: PNEUMONIA
     Route: 048
  2. OFLOCET [Suspect]
     Indication: PLEURISY
     Route: 048
  3. ROCEPHIN [Suspect]
     Indication: PNEUMONIA
     Route: 042
  4. ROCEPHIN [Suspect]
     Indication: PLEURISY
     Route: 042
  5. SINTROM [Concomitant]
     Route: 048
  6. TRACLEER [Concomitant]
     Route: 048
  7. TRACLEER [Concomitant]
     Route: 048
  8. POLARAMINE [Concomitant]
     Indication: PROPHYLAXIS
     Route: 048
  9. ZOLPIDEM TARTRATE [Concomitant]
     Route: 048
  10. LEXOMIL [Concomitant]
     Route: 048
  11. REVATIO [Concomitant]
     Route: 048
  12. QUESTRAN [Concomitant]
     Route: 048
  13. IMOVANE [Concomitant]
     Route: 048
  14. LASIX [Concomitant]
     Route: 048
  15. OXYGEN [Concomitant]
     Route: 065
  16. ENOXAPARIN SODIUM [Concomitant]
     Route: 065
  17. AMIODARONE HCL [Concomitant]
     Route: 065
  18. DOBUTAMINE HCL [Concomitant]
     Route: 065
  19. DEXCHLORPHENIRAMINE [Concomitant]
     Indication: PRURITUS
     Route: 065
  20. CONTRAMAL [Concomitant]
     Route: 048

REACTIONS (2)
  - AGRANULOCYTOSIS [None]
  - CARDIAC ARREST [None]
